FAERS Safety Report 6402555-4 (Version None)
Quarter: 2009Q4

REPORT INFORMATION
  Report Type: 
  Country: None (occurrence: None)
  Receive Date: 20091015
  Receipt Date: 20091009
  Transmission Date: 20100525
  Serious: Yes (Hospitalization, Other)
  Sender: FDA-Public Use
  Company Number: DE-MERCK-0910DEU00036

PATIENT
  Age: 77 Year
  Sex: Female
  Weight: 60 kg

DRUGS (1)
  1. ZOCOR [Suspect]
     Indication: CEREBRAL INFARCTION
     Route: 048
     Dates: start: 20090224, end: 20090809

REACTIONS (3)
  - LIVER INJURY [None]
  - MUSCULAR WEAKNESS [None]
  - RHABDOMYOLYSIS [None]
